FAERS Safety Report 5293719-4 (Version None)
Quarter: 2007Q2

REPORT INFORMATION
  Report Type: 
  Country: None (occurrence: None)
  Receive Date: 20070405
  Receipt Date: 20070327
  Transmission Date: 20071010
  Serious: Yes (Death)
  Sender: FDA-Public Use
  Company Number: 2007RR-06232

PATIENT
  Age: 34 Year
  Sex: Male

DRUGS (4)
  1. AMISULPRIDE(AMISULPRIDE) UNKNOWN [Suspect]
  2. ACETAMINOPHEN [Suspect]
  3. CLOZAPINE [Suspect]
     Indication: SCHIZOPHRENIA, PARANOID TYPE
     Dosage: 300 MG, QD, ORAL
     Route: 048
     Dates: start: 20060601
  4. FLUOXETINE [Concomitant]

REACTIONS (3)
  - DRUG TOXICITY [None]
  - MULTIPLE DRUG OVERDOSE [None]
  - PULMONARY OEDEMA [None]
